FAERS Safety Report 6524022-X (Version None)
Quarter: 2009Q4

REPORT INFORMATION
  Report Type: 
  Country: None (occurrence: None)
  Receive Date: 20091230
  Receipt Date: 20091230
  Transmission Date: 20100525
  Serious: Yes (Hospitalization)
  Sender: FDA-Public Use
  Company Number: None

PATIENT
  Sex: Female
  Weight: 6.78 kg

DRUGS (3)
  1. METHOTREXATE [Suspect]
     Dosage: 2.5 MG
  2. THIOTEPA [Suspect]
     Dosage: 134 MG
  3. CARBOPLATIN [Suspect]
     Dosage: 230 MG

REACTIONS (7)
  - DRUG TOXICITY [None]
  - GENERAL PHYSICAL HEALTH DETERIORATION [None]
  - LEUKOPENIA [None]
  - PLATELET COUNT DECREASED [None]
  - PULMONARY VENO-OCCLUSIVE DISEASE [None]
  - RESPIRATORY FAILURE [None]
  - TACHYPNOEA [None]
